FAERS Safety Report 8203652-3 (Version None)
Quarter: 2012Q1

REPORT INFORMATION
  Report Type: 
  Country: None (occurrence: None)
  Receive Date: 20120308
  Receipt Date: 20120301
  Transmission Date: 20120608
  Serious: Yes (Death)
  Sender: FDA-Public Use
  Company Number: 2012ST000178

PATIENT
  Age: 60 Year
  Sex: Female

DRUGS (1)
  1. MATULANE [Suspect]
     Indication: GLIOBLASTOMA
     Dosage: 100 MG; QD; PO
     Route: 048
     Dates: start: 20120113

REACTIONS (2)
  - GLIOBLASTOMA [None]
  - NEOPLASM PROGRESSION [None]
